FAERS Safety Report 6047044-4 (Version None)
Quarter: 2009Q1

REPORT INFORMATION
  Report Type: 
  Country: None (occurrence: None)
  Receive Date: 20090122
  Receipt Date: 20090120
  Transmission Date: 20090719
  Serious: Yes (Hospitalization)
  Sender: FDA-Public Use
  Company Number: US-ASTRAZENECA-2009UW01566

PATIENT
  Sex: Male

DRUGS (1)
  1. NEXIUM [Suspect]
     Dosage: PRN
     Route: 048
     Dates: start: 20081107

REACTIONS (1)
  - THROMBOSIS [None]
